FAERS Safety Report 7891017 (Version 4)
Quarter: 2013Q3

REPORT INFORMATION
  Report Type: Report from Study
  Country: US (occurrence: US)
  Receive Date: 20110408
  Receipt Date: 20130827
  Transmission Date: 20140515
  Serious: Yes (Other)
  Sender: FDA-Public Use
  Company Number: PHHO2011US05570

PATIENT
  Age: 57 Year
  Sex: Female
  Weight: 84 kg

DRUGS (11)
  1. GILENYA [Suspect]
     Indication: MULTIPLE SCLEROSIS
     Dosage: DOSE BLINDED
     Route: 048
  2. GILENYA [Suspect]
     Dosage: 0.5 MG, QD
     Route: 048
     Dates: start: 20100224, end: 20110131
  3. PROCARDIA [Concomitant]
  4. DDAVP [Concomitant]
  5. DITROPAN [Concomitant]
  6. FLOMAX [Concomitant]
  7. PRAVACHOL [Concomitant]
  8. IBUPROFEN [Concomitant]
  9. CELEBREX [Concomitant]
  10. TRIAMTERENE AND HYDROCHLOROTHIAZID [Concomitant]
  11. TYLENOL [Concomitant]

REACTIONS (1)
  - Lip squamous cell carcinoma [Recovered/Resolved]
